FAERS Safety Report 16563743 (Version 3)
Quarter: 2019Q3

REPORT INFORMATION
  Report Type: Report from Study
  Country: US (occurrence: US)
  Receive Date: 20190712
  Receipt Date: 20190723
  Transmission Date: 20191004
  Serious: No
  Sender: FDA-Public Use
  Company Number: US-ROCHE-2351783

PATIENT
  Sex: Female
  Weight: 7.85 kg

DRUGS (3)
  1. SOMATROPIN. [Suspect]
     Active Substance: SOMATROPIN
     Indication: HYPOPITUITARISM
  2. SOMATROPIN. [Suspect]
     Active Substance: SOMATROPIN
     Indication: HYPERTHYROIDISM
     Route: 058
     Dates: start: 201905
  3. LEVOTHYROXINE SODIUM. [Concomitant]
     Active Substance: LEVOTHYROXINE SODIUM
     Route: 048
     Dates: start: 20171101

REACTIONS (1)
  - No adverse event [Unknown]
